FAERS Safety Report 10173115 (Version 1)
Quarter: 2014Q2

REPORT INFORMATION
  Report Type: Spontaneous
  Country: US (occurrence: None)
  Receive Date: 20140514
  Receipt Date: 20140514
  Transmission Date: 20141212
  Serious: Yes (Hospitalization)
  Sender: FDA-Public Use
  Company Number: None

PATIENT
  Age: 63 Year
  Sex: Male
  Weight: 47.63 kg

DRUGS (9)
  1. XIAFLEX 0.9 MG/VIAL AUXILLIUM PHARMACEUTICALS, INC [Suspect]
     Indication: PEYRONIE^S DISEASE
     Dosage: 0.58MG AS DIRECTED, INTRALESIONALLY
     Dates: start: 20140509
  2. OMEPRAZOLE [Concomitant]
  3. ATORVASTATIN [Concomitant]
  4. NIFEDIPINE [Concomitant]
  5. TAMSULOSIN [Concomitant]
  6. AMITRIPTYLINE [Concomitant]
  7. MESALAMINE [Concomitant]
  8. LIDOCAINE PATCH [Concomitant]
  9. XIAFLEX [Concomitant]

REACTIONS (4)
  - Penile pain [None]
  - Penile haemorrhage [None]
  - Penile swelling [None]
  - Fracture of penis [None]
